FAERS Safety Report 5378374-7 (Version None)
Quarter: 2007Q3

REPORT INFORMATION
  Report Type: 
  Country: None (occurrence: None)
  Receive Date: 20070702
  Receipt Date: 20070702
  Transmission Date: 20080115
  Serious: Yes (Life-Threatening, Hospitalization)
  Sender: FDA-Public Use
  Company Number: None

PATIENT
  Sex: Female
  Weight: 64 kg

DRUGS (8)
  1. MIGRATINE MADE BY EXCELLUM PHARMACEUTICALS [Suspect]
     Indication: MIGRAINE
     Dates: start: 20070611
  2. WELLBUTRIN [Concomitant]
  3. ZOLOFT [Concomitant]
  4. ALPRAZOLAM [Concomitant]
  5. TIZANADINE [Concomitant]
  6. LORAZEPAM [Concomitant]
  7. VERAPAMIL [Concomitant]
  8. LYRICA [Concomitant]

REACTIONS (6)
  - CEREBROVASCULAR ACCIDENT [None]
  - DEPRESSED LEVEL OF CONSCIOUSNESS [None]
  - FEELING COLD [None]
  - HYPERREFLEXIA [None]
  - MYOCLONUS [None]
  - POSTURING [None]
